FAERS Safety Report 7865351-7 (Version None)
Quarter: 2011Q4

REPORT INFORMATION
  Report Type: 
  Country: None (occurrence: None)
  Receive Date: 20111028
  Receipt Date: 20101123
  Transmission Date: 20120403
  Serious: No
  Sender: FDA-Public Use
  Company Number: US-GLAXOSMITHKLINE-A0897078A

PATIENT
  Age: 43 Year
  Sex: Female
  Weight: 55.3 kg

DRUGS (2)
  1. ADVAIR DISKUS 100/50 [Suspect]
     Indication: ASTHMA
     Route: 055
     Dates: start: 20100901, end: 20101001
  2. ALVESCO [Suspect]
     Indication: ASTHMA
     Dosage: 160MCG TWICE PER DAY
     Route: 055
     Dates: start: 20100917, end: 20100901

REACTIONS (4)
  - CHEST DISCOMFORT [None]
  - DYSPHAGIA [None]
  - DYSPNOEA [None]
  - DRUG INEFFECTIVE [None]
